FAERS Safety Report 10205056 (Version 1)
Quarter: 2014Q2

REPORT INFORMATION
  Report Type: Spontaneous
  Country: US (occurrence: US)
  Receive Date: 20140529
  Receipt Date: 20140529
  Transmission Date: 20141212
  Serious: No
  Sender: FDA-Public Use
  Company Number: US-BAYER-2014-069671

PATIENT
  Age: 83 Year
  Sex: Female
  Weight: 45 kg

DRUGS (6)
  1. ALEVE CAPLET [Suspect]
     Indication: ARTHRITIS
     Dosage: 1 DF, UNK
     Route: 048
     Dates: start: 20140508
  2. GLUCOSAMINE [Concomitant]
  3. CHONDROITIN [Concomitant]
  4. VITAMIN D3 [Concomitant]
  5. CELADRIN [Concomitant]
  6. CURCUMIN [Concomitant]

REACTIONS (1)
  - Drug ineffective [None]
